FAERS Safety Report 13745670 (Version 1)
Quarter: 2017Q3

REPORT INFORMATION
  Report Type: Spontaneous
  Country: US (occurrence: US)
  Receive Date: 20170712
  Receipt Date: 20170712
  Transmission Date: 20171127
  Serious: Yes (Disabling)
  Sender: FDA-Public Use
  Company Number: None

PATIENT
  Age: 63 Year
  Sex: Female
  Weight: 72.64 kg

DRUGS (4)
  1. CIPROFLOXACIN HCL 500MG TAB [Suspect]
     Active Substance: CIPROFLOXACIN
     Indication: URINARY TRACT INFECTION
     Route: 048
     Dates: start: 20170420, end: 20170427
  2. HYDROCHLOROTHIAZIDE. [Concomitant]
     Active Substance: HYDROCHLOROTHIAZIDE
  3. FISH OIL [Concomitant]
     Active Substance: FISH OIL
  4. PSYLLIUM FIBER [Concomitant]

REACTIONS (9)
  - Paraesthesia [None]
  - Vascular injury [None]
  - Tendon pain [None]
  - Loss of personal independence in daily activities [None]
  - Agitation [None]
  - Arthralgia [None]
  - Sleep disorder [None]
  - Insomnia [None]
  - Dizziness [None]

NARRATIVE: CASE EVENT DATE: 20170427
